FAERS Safety Report 6319021-7 (Version None)
Quarter: 2009Q3

REPORT INFORMATION
  Report Type: 
  Country: None (occurrence: None)
  Receive Date: 20090821
  Receipt Date: 20080807
  Transmission Date: 20100115
  Serious: No
  Sender: FDA-Public Use
  Company Number: US-ABBOTT-08P-163-0465114-00

PATIENT
  Sex: Male
  Weight: 127.12 kg

DRUGS (9)
  1. NIASPAN [Suspect]
     Indication: HYPERCHOLESTEROLAEMIA
     Route: 048
     Dates: start: 20080709, end: 20080721
  2. NIASPAN [Suspect]
     Dates: start: 20080728
  3. ASPIRIN [Concomitant]
     Indication: DRUG USE FOR UNKNOWN INDICATION
     Route: 048
  4. CLOPIDOGREL [Concomitant]
     Indication: DRUG USE FOR UNKNOWN INDICATION
     Route: 048
  5. AMOXICILLIN AND CLAVULANATE POTASSIUM [Concomitant]
     Indication: ABSCESS
     Dosage: 875/125 MG ONE TAB BID
     Route: 048
     Dates: start: 20080717
  6. OMEGA FISH OIL [Concomitant]
     Indication: DRUG USE FOR UNKNOWN INDICATION
     Route: 048
  7. MULTI-VITAMIN [Concomitant]
     Indication: DRUG USE FOR UNKNOWN INDICATION
     Route: 048
  8. HERBS [Concomitant]
     Indication: DRUG USE FOR UNKNOWN INDICATION
  9. ROOTS [Concomitant]
     Indication: DRUG USE FOR UNKNOWN INDICATION

REACTIONS (21)
  - ABSCESS [None]
  - ASTHENIA [None]
  - BALANCE DISORDER [None]
  - BURNING SENSATION [None]
  - CHEST DISCOMFORT [None]
  - DIZZINESS [None]
  - DYSPNOEA [None]
  - FLUSHING [None]
  - GAIT DISTURBANCE [None]
  - HEADACHE [None]
  - JOINT RANGE OF MOTION DECREASED [None]
  - JOINT STIFFNESS [None]
  - MUSCULAR WEAKNESS [None]
  - MUSCULOSKELETAL STIFFNESS [None]
  - MYALGIA [None]
  - NAUSEA [None]
  - PAIN IN EXTREMITY [None]
  - PRURITUS [None]
  - SLEEP DISORDER [None]
  - TEMPERATURE INTOLERANCE [None]
  - TINNITUS [None]
